FAERS Safety Report 5130123-3 (Version None)
Quarter: 2006Q4

REPORT INFORMATION
  Report Type: 
  Country: None (occurrence: None)
  Receive Date: 20061013
  Receipt Date: 20060929
  Transmission Date: 20070319
  Serious: Yes (Other)
  Sender: FDA-Public Use
  Company Number: IT200610000783

PATIENT
  Age: 60 Year
  Sex: Female

DRUGS (6)
  1. FORTEO [Suspect]
     Indication: OSTEOPOROSIS
     Dosage: 20 UG, DAILY (1/D), SUBCUTANEOUS
     Route: 058
     Dates: start: 20060927
  2. CORTISONE ACETATE [Concomitant]
  3. TRAMADOL HCL [Concomitant]
  4. CO-EFFERALGAN (CODEINE PHOSPHATE, PARACETAMOL) [Concomitant]
  5. INTRAFER (FERROUS AMINOPROPANE DICARBOXYLATE) [Concomitant]
  6. AZATHIOPRINE [Concomitant]

REACTIONS (2)
  - CONDITION AGGRAVATED [None]
  - THROMBOCYTOPENIA [None]
